FAERS Safety Report 16495615 (Version 12)
Quarter: 2022Q2

REPORT INFORMATION
  Report Type: Spontaneous
  Country: US (occurrence: US)
  Receive Date: 20190628
  Receipt Date: 20220523
  Transmission Date: 20220721
  Serious: No
  Sender: FDA-Public Use
  Company Number: US-PFIZER INC-2019275753

PATIENT
  Age: 51 Year
  Sex: Male

DRUGS (4)
  1. SUTENT [Suspect]
     Active Substance: SUNITINIB MALATE
     Indication: Gastrointestinal stromal tumour
     Dosage: 50 MG, CYCLIC (DAILY FOR 14 DAYS THEN STOP FOR 7 DAYS THEN REPEAT)
     Route: 048
     Dates: start: 20190603
  2. SUTENT [Suspect]
     Active Substance: SUNITINIB MALATE
     Dosage: 50 MG, DAILY (TAKE 1 TAB BY MOUTH DAILY FOR 28 DAYS)
     Route: 048
  3. SUTENT [Suspect]
     Active Substance: SUNITINIB MALATE
     Dosage: 37.5 MG, DAILY (TAKE1 TAB PO EVERYDAY)
     Route: 048
  4. SUTENT [Suspect]
     Active Substance: SUNITINIB MALATE
     Dosage: 37.5 MG, CYCLIC (PLEASE TAKE ON MONDAY, TUESDAY, THURSDAY, AND FRIDAY EVERY WEEK)

REACTIONS (20)
  - Off label use [Unknown]
  - Product dose omission in error [Unknown]
  - Joint swelling [Recovering/Resolving]
  - Peripheral swelling [Recovering/Resolving]
  - Gastric disorder [Unknown]
  - Feeding disorder [Unknown]
  - Sluggishness [Unknown]
  - Pain [Unknown]
  - Headache [Unknown]
  - Decreased appetite [Unknown]
  - Weight decreased [Unknown]
  - Pruritus [Unknown]
  - Gastrooesophageal reflux disease [Unknown]
  - Abdominal pain upper [Unknown]
  - Throat irritation [Unknown]
  - Rash macular [Recovering/Resolving]
  - Rash [Unknown]
  - Dyspepsia [Unknown]
  - Chest pain [Unknown]
  - Palpitations [Unknown]
